FAERS Safety Report 8459493-5 (Version None)
Quarter: 2012Q2

REPORT INFORMATION
  Report Type: 
  Country: None (occurrence: None)
  Receive Date: 20120622
  Receipt Date: 20120617
  Transmission Date: 20120825
  Serious: Yes (Hospitalization)
  Sender: FDA-Public Use
  Company Number: JP-ELI_LILLY_AND_COMPANY-JP201203009036

PATIENT
  Sex: Male

DRUGS (1)
  1. FORTEO [Suspect]
     Route: 058

REACTIONS (3)
  - NASOPHARYNGITIS [None]
  - LARYNGEAL POLYP [None]
  - PYREXIA [None]
